FAERS Safety Report 13548576 (Version 1)
Quarter: 2017Q2

REPORT INFORMATION
  Report Type: Spontaneous
  Country: US (occurrence: US)
  Receive Date: 20170516
  Receipt Date: 20170516
  Transmission Date: 20170830
  Serious: No
  Sender: FDA-Public Use
  Company Number: US-JNJFOC-20170419966

PATIENT
  Age: 3 Decade
  Sex: Male

DRUGS (2)
  1. MENS ROGAINE EXTRA STRENGTH [Suspect]
     Active Substance: MINOXIDIL
     Route: 061
  2. MENS ROGAINE EXTRA STRENGTH [Suspect]
     Active Substance: MINOXIDIL
     Indication: ALOPECIA
     Route: 061
     Dates: start: 2015

REACTIONS (6)
  - Incorrect dose administered [Unknown]
  - Alopecia [Unknown]
  - Product physical issue [Unknown]
  - Inappropriate schedule of drug administration [Unknown]
  - Hair texture abnormal [Unknown]
  - Drug ineffective for unapproved indication [Unknown]
